FAERS Safety Report 13983528 (Version 1)
Quarter: 2017Q3

REPORT INFORMATION
  Report Type: Not Available
  Country: US (occurrence: US)
  Receive Date: 20170918
  Receipt Date: 20170918
  Transmission Date: 20171128
  Serious: Yes (Hospitalization)
  Sender: FDA-Public Use
  Company Number: US-ANIPHARMA-2017-US-010863

PATIENT
  Age: 80 Year
  Sex: Male

DRUGS (1)
  1. PHENYTOIN SODIUM (NON-SPECIFIC) [Suspect]
     Active Substance: PHENYTOIN SODIUM

REACTIONS (4)
  - Pemphigoid [Recovering/Resolving]
  - Respiratory failure [Recovered/Resolved]
  - Acquired haemophilia [Recovering/Resolving]
  - Haemoptysis [Recovered/Resolved]
